FAERS Safety Report 5164018-6 (Version None)
Quarter: 2006Q4

REPORT INFORMATION
  Report Type: 
  Country: None (occurrence: None)
  Receive Date: 20061204
  Receipt Date: 20010615
  Transmission Date: 20070319
  Serious: Yes (Hospitalization)
  Sender: FDA-Public Use
  Company Number: FR-BOEHRINGER INGELHEIM GMBH, GERMANY-2001-FF-S0374

PATIENT
  Sex: Female
  Weight: 3 kg

DRUGS (16)
  1. VIRAMUNE [Suspect]
     Indication: HUMAN IMMUNODEFICIENCY VIRUS TRANSMISSION
     Route: 048
     Dates: start: 20010203, end: 20010203
  2. VIRAMUNE [Suspect]
     Indication: HIV INFECTION
     Route: 064
     Dates: start: 20000627, end: 20010131
  3. VIDEX [Suspect]
     Indication: HUMAN IMMUNODEFICIENCY VIRUS TRANSMISSION
     Route: 048
     Dates: start: 20010131, end: 20010301
  4. VIDEX [Suspect]
     Route: 064
     Dates: end: 20010131
  5. INVIRASE [Suspect]
     Indication: HIV INFECTION
     Route: 064
     Dates: end: 20010131
  6. NORVIR [Suspect]
     Indication: HIV INFECTION
     Route: 064
     Dates: end: 20010131
  7. SUSTIVA [Suspect]
     Indication: HIV INFECTION
     Route: 064
  8. VIRACEPT [Suspect]
     Indication: HIV INFECTION
     Route: 064
  9. RETROVIR [Suspect]
     Indication: HUMAN IMMUNODEFICIENCY VIRUS TRANSMISSION
     Route: 064
     Dates: start: 20010131, end: 20010131
  10. BACTRIM [Concomitant]
     Indication: TOXOPLASMOSIS
     Route: 064
  11. DEPAKENE [Concomitant]
     Indication: CONVULSION
     Route: 064
  12. SPECIAFOLDINE [Concomitant]
     Route: 064
  13. VOGALENE [Concomitant]
     Route: 064
  14. OXACILLIN [Concomitant]
     Route: 064
  15. PREVISCAN [Concomitant]
     Route: 064
  16. FRAXIPARINE [Concomitant]
     Route: 064

REACTIONS (6)
  - BLOOD KETONE BODY INCREASED [None]
  - BLOOD LACTIC ACID INCREASED [None]
  - HEPATOSPLENOMEGALY [None]
  - HYPERTRIGLYCERIDAEMIA [None]
  - LACTATE PYRUVATE RATIO INCREASED [None]
  - NEUTROPENIA [None]
